FAERS Safety Report 12986414 (Version 1)
Quarter: 2016Q4

REPORT INFORMATION
  Report Type: Spontaneous
  Country: US (occurrence: US)
  Receive Date: 20161130
  Receipt Date: 20161130
  Transmission Date: 20170207
  Serious: No
  Sender: FDA-Public Use
  Company Number: US-GE HEALTHCARE MEDICAL DIAGNOSTICS-VISP-PR-1608S-0456

PATIENT
  Age: 67 Year
  Sex: Male
  Weight: 71.5 kg

DRUGS (6)
  1. AMLODIPINE [Concomitant]
     Active Substance: AMLODIPINE BESYLATE
  2. CALCIUM ACETATE. [Concomitant]
     Active Substance: CALCIUM ACETATE
  3. VISIPAQUE [Suspect]
     Active Substance: IODIXANOL
     Indication: DIAGNOSTIC PROCEDURE
  4. CLONIDINE. [Concomitant]
     Active Substance: CLONIDINE
  5. COREG [Concomitant]
     Active Substance: CARVEDILOL
  6. VISIPAQUE [Suspect]
     Active Substance: IODIXANOL
     Indication: ARTERIOVENOUS FISTULA SITE HAEMORRHAGE
     Route: 042
     Dates: start: 20160809, end: 20160809

REACTIONS (3)
  - Erythema [Recovering/Resolving]
  - Pruritus [Recovering/Resolving]
  - Urticaria [Recovering/Resolving]

NARRATIVE: CASE EVENT DATE: 20160809
